FAERS Safety Report 12602274 (Version 5)
Quarter: 2017Q2

REPORT INFORMATION
  Report Type: Spontaneous
  Country: US (occurrence: US)
  Receive Date: 20160728
  Receipt Date: 20170403
  Transmission Date: 20170830
  Serious: No
  Sender: FDA-Public Use
  Company Number: US-PFIZER INC-2016350880

PATIENT
  Age: 74 Year
  Sex: Female

DRUGS (2)
  1. IBRANCE [Suspect]
     Active Substance: PALBOCICLIB
     Dosage: 100 MG, UNK
     Dates: start: 201607
  2. IBRANCE [Suspect]
     Active Substance: PALBOCICLIB
     Dosage: UNK
     Dates: start: 201603

REACTIONS (6)
  - Nausea [Not Recovered/Not Resolved]
  - Fatigue [Unknown]
  - Thirst [Unknown]
  - Musculoskeletal pain [Not Recovered/Not Resolved]
  - Dry mouth [Unknown]
  - Asthenia [Unknown]
